FAERS Safety Report 16395785 (Version 2)
Quarter: 2019Q2

REPORT INFORMATION
  Report Type: Spontaneous
  Country: US (occurrence: US)
  Receive Date: 20190605
  Receipt Date: 20190610
  Transmission Date: 20190711
  Serious: Yes (Death, Other)
  Sender: FDA-Public Use
  Company Number: US-LUNDBECK-DKLU2079657

PATIENT
  Age: 44 Year
  Sex: Female
  Weight: 90 kg

DRUGS (7)
  1. ONFI [Suspect]
     Active Substance: CLOBAZAM
     Indication: LENNOX-GASTAUT SYNDROME
     Route: 048
     Dates: start: 2017
  2. PAROXETINE. [Concomitant]
     Active Substance: PAROXETINE
     Indication: DEPRESSION
     Route: 065
  3. ONFI [Suspect]
     Active Substance: CLOBAZAM
     Indication: CORTICAL DYSPLASIA
     Route: 048
     Dates: start: 201706
  4. ONFI [Suspect]
     Active Substance: CLOBAZAM
     Indication: SEIZURE
  5. METOPROLOL. [Concomitant]
     Active Substance: METOPROLOL
     Indication: HYPERTENSION
     Route: 065
  6. ONFI [Suspect]
     Active Substance: CLOBAZAM
     Indication: PARTIAL SEIZURES
     Route: 048
     Dates: end: 201906
  7. TEGRETOL [Concomitant]
     Active Substance: CARBAMAZEPINE
     Indication: SEIZURE
     Route: 065

REACTIONS (2)
  - Death [Fatal]
  - Seizure [Unknown]

NARRATIVE: CASE EVENT DATE: 20190527
